FAERS Safety Report 7815810-8 (Version None)
Quarter: 2011Q4

REPORT INFORMATION
  Report Type: 
  Country: None (occurrence: None)
  Receive Date: 20111014
  Receipt Date: 20110929
  Transmission Date: 20120403
  Serious: Yes (Other)
  Sender: FDA-Public Use
  Company Number: CA-ROCHE-1001646

PATIENT
  Sex: Female
  Weight: 90.8 kg

DRUGS (16)
  1. MABTHERA [Suspect]
     Indication: IDIOPATHIC THROMBOCYTOPENIC PURPURA
     Route: 042
     Dates: start: 20110916
  2. ELAVIL [Concomitant]
  3. ATENOLOL [Concomitant]
  4. PERINDOPRIL ERBUMINE [Concomitant]
  5. TERAZOSIN HCL [Concomitant]
  6. MORPHINE [Concomitant]
  7. PANTOPRAZOLE SODIUM [Concomitant]
  8. DOCUSATE SODIUM [Concomitant]
  9. GLUCOSAMINE [Concomitant]
  10. LORAZEPAM [Concomitant]
  11. DETROL [Concomitant]
  12. CLONAZEPAM [Concomitant]
  13. CALCIUM CARBONATE [Concomitant]
  14. MAGNESIUM [Concomitant]
  15. ELTROMBOPAG [Concomitant]
  16. ASCORBIC ACID [Concomitant]

REACTIONS (2)
  - DYSPHAGIA [None]
  - THROAT TIGHTNESS [None]
